FAERS Safety Report 5237778-3 (Version None)
Quarter: 2007Q1

REPORT INFORMATION
  Report Type: 
  Country: None (occurrence: None)
  Receive Date: 20070214
  Receipt Date: 20070212
  Transmission Date: 20070707
  Serious: Yes (Other)
  Sender: FDA-Public Use
  Company Number: ES-GLAXOSMITHKLINE-B0458186A

PATIENT
  Age: 55 Year
  Sex: Male

DRUGS (1)
  1. ZYNTABAC [Suspect]
     Route: 048
     Dates: start: 20061001, end: 20061101

REACTIONS (4)
  - ARTHRITIS [None]
  - CONSTIPATION [None]
  - INSOMNIA [None]
  - OEDEMA PERIPHERAL [None]
